FAERS Safety Report 18975576 (Version 3)
Quarter: 2021Q2

REPORT INFORMATION
  Report Type: Report from Study
  Country: US (occurrence: US)
  Receive Date: 20210306
  Receipt Date: 20210612
  Transmission Date: 20210717
  Serious: No
  Sender: FDA-Public Use
  Company Number: NVSC2021US051139

PATIENT
  Sex: Female

DRUGS (1)
  1. PIQRAY [Suspect]
     Active Substance: ALPELISIB
     Indication: BREAST CANCER
     Dosage: 300 MG, QD
     Route: 048

REACTIONS (3)
  - Lung infiltration [Not Recovered/Not Resolved]
  - Rash [Recovered/Resolved]
  - Stomatitis [Recovered/Resolved]
